FAERS Safety Report 12660388 (Version 1)
Quarter: 2016Q3

REPORT INFORMATION
  Report Type: Spontaneous
  Country: CH (occurrence: CH)
  Receive Date: 20160817
  Receipt Date: 20160817
  Transmission Date: 20161109
  Serious: Yes (Other)
  Sender: FDA-Public Use
  Company Number: CH-IGI LABORATORIES, INC.-1056427

PATIENT
  Age: 36 Year
  Sex: Female
  Weight: 69 kg

DRUGS (10)
  1. CYCLOPHOSPHAMIDE. [Suspect]
     Active Substance: CYCLOPHOSPHAMIDE
     Route: 041
     Dates: start: 20151027, end: 20151228
  2. SOLU-MEDROL [Suspect]
     Active Substance: METHYLPREDNISOLONE SODIUM SUCCINATE
     Route: 040
     Dates: start: 20151027, end: 20151228
  3. PACLITAXEL. [Suspect]
     Active Substance: PACLITAXEL
     Route: 041
     Dates: start: 20160121, end: 20160121
  4. EPIRUBICIN HYDROCHLORIDE. [Suspect]
     Active Substance: EPIRUBICIN HYDROCHLORIDE
     Route: 048
     Dates: start: 20151027, end: 20151228
  5. ZOFRAN [Suspect]
     Active Substance: ONDANSETRON HYDROCHLORIDE
     Route: 041
     Dates: start: 20160121, end: 20160121
  6. ZANTAC [Suspect]
     Active Substance: RANITIDINE HYDROCHLORIDE
     Indication: PROPHYLAXIS
     Route: 040
     Dates: start: 20160121, end: 20160121
  7. TAVEGYL [Suspect]
     Active Substance: CLEMASTINE FUMARATE
     Route: 041
     Dates: start: 20160121, end: 20160121
  8. EMEND [Suspect]
     Active Substance: APREPITANT
     Route: 048
     Dates: start: 20151027, end: 20151118
  9. MEPHAMESON [Suspect]
     Active Substance: DEXAMETHASONE
     Route: 041
     Dates: start: 20160121, end: 20160121
  10. ALOXI [Suspect]
     Active Substance: PALONOSETRON HYDROCHLORIDE
     Route: 040
     Dates: start: 20151027, end: 20151228

REACTIONS (2)
  - Premature baby [Recovered/Resolved]
  - Exposure during pregnancy [None]

NARRATIVE: CASE EVENT DATE: 20160215
